FAERS Safety Report 9664455 (Version 5)
Quarter: 2014Q2

REPORT INFORMATION
  Report Type: Report from Study
  Country: US (occurrence: US)
  Receive Date: 20131101
  Receipt Date: 20140411
  Transmission Date: 20141212
  Serious: Yes (Hospitalization, Other)
  Sender: FDA-Public Use
  Company Number: US-ROCHE-1292843

PATIENT
  Age: 62 Year
  Sex: Female

DRUGS (15)
  1. TRASTUZUMAB EMTANSINE [Suspect]
     Indication: BREAST CANCER
     Dosage: DATE OF LAST DOSE PRIOR TO SAE ONSET: 29/AUG/2013 (DOSE : 297 MG)
     Route: 042
     Dates: start: 20090305, end: 20130829
  2. CHONDROITIN + GLUCOSAMINE [Concomitant]
     Indication: ARTHRITIS
     Route: 065
     Dates: start: 200412
  3. DEXAMETHASONE [Concomitant]
     Indication: PREMEDICATION
     Route: 065
     Dates: start: 20080312
  4. KYTRIL [Concomitant]
     Indication: PREMEDICATION
     Route: 065
     Dates: start: 20080312
  5. VALTREX [Concomitant]
     Indication: HERPES SIMPLEX
     Route: 048
     Dates: start: 20080117
  6. PLAQUENIL [Concomitant]
     Indication: ARTHRITIS
     Dosage: 2 TABLET BY MOUTH EVERY DAY
     Route: 048
     Dates: start: 20090305
  7. PREDNISONE [Concomitant]
     Indication: ARTHRITIS
     Route: 065
     Dates: start: 20090123
  8. IBUPROFEN [Concomitant]
     Indication: ARTHRITIS
     Route: 065
     Dates: start: 20120229
  9. VITAMIN C [Concomitant]
     Indication: NUTRITIONAL SUPPLEMENTATION
     Route: 065
     Dates: start: 20120229
  10. HYDROCODONE/ACETAMINOPHEN [Concomitant]
     Indication: MUSCULOSKELETAL CHEST PAIN
     Route: 065
     Dates: start: 20071129
  11. PROTONIX (OMEPRAZOLE) [Concomitant]
     Indication: PROPHYLAXIS OF NAUSEA AND VOMITING
     Route: 048
     Dates: start: 20130903, end: 20130903
  12. ZOFRAN [Concomitant]
     Indication: PROPHYLAXIS OF NAUSEA AND VOMITING
     Route: 065
     Dates: start: 20130903, end: 20130903
  13. KRISTALOSE [Concomitant]
     Route: 048
  14. XIFAXAN [Concomitant]
     Indication: CONFUSIONAL STATE
     Route: 048
  15. ALIGN [Concomitant]
     Dosage: ONE BY MOUTH EVERY DAY
     Route: 048

REACTIONS (3)
  - Varices oesophageal [Recovered/Resolved]
  - Portal hypertension [Not Recovered/Not Resolved]
  - Nodular regenerative hyperplasia [Not Recovered/Not Resolved]
